FAERS Safety Report 12965909 (Version 3)
Quarter: 2017Q1

REPORT INFORMATION
  Report Type: Spontaneous
  Country: NL (occurrence: NL)
  Receive Date: 20161122
  Receipt Date: 20170113
  Transmission Date: 20170428
  Serious: Yes (Hospitalization)
  Sender: FDA-Public Use
  Company Number: NL-NOVOPROD-518990

PATIENT
  Age: 22 Year
  Sex: Female
  Weight: 85 kg

DRUGS (1)
  1. NOVORAPID [Suspect]
     Active Substance: INSULIN ASPART
     Indication: TYPE 1 DIABETES MELLITUS
     Dosage: 95 U, QD
     Route: 058

REACTIONS (3)
  - Blood pH decreased [Recovered/Resolved]
  - Product leakage [Recovered/Resolved]
  - Product container issue [Recovered/Resolved]

NARRATIVE: CASE EVENT DATE: 20161029
